FAERS Safety Report 10059937 (Version 2)
Quarter: 2014Q2

REPORT INFORMATION
  Report Type: Report from Study
  Country: JP (occurrence: JP)
  Receive Date: 20140404
  Receipt Date: 20140404
  Transmission Date: 20141212
  Serious: Yes (Death)
  Sender: FDA-Public Use
  Company Number: JP-VIIV HEALTHCARE LIMITED-B0423119A

PATIENT
  Age: 47 Year
  Sex: Male

DRUGS (6)
  1. ZIAGEN [Suspect]
     Indication: HIV INFECTION
     Dosage: 300MG TWICE PER DAY
     Route: 048
     Dates: start: 20050927, end: 20060329
  2. RETROVIR [Suspect]
     Indication: HIV INFECTION
     Route: 048
     Dates: start: 19961126, end: 20060329
  3. EPIVIR [Suspect]
     Indication: HIV INFECTION
     Route: 048
     Dates: start: 19961126, end: 20050926
  4. KALETRA [Suspect]
     Indication: HIV INFECTION
     Dosage: 6U PER DAY
     Route: 048
     Dates: start: 20050927, end: 20060329
  5. AMARYL [Concomitant]
     Indication: DIABETES MELLITUS
     Dosage: 1 PER DAY
     Route: 048
     Dates: start: 20050401, end: 20060329
  6. ANTI-HEMOPHILIC GLOBULIN [Concomitant]
     Indication: FACTOR VIII DEFICIENCY
     Route: 042
     Dates: start: 20050401, end: 20060329

REACTIONS (6)
  - Ascites [Fatal]
  - Hepatic cirrhosis [Fatal]
  - Pleural effusion [Fatal]
  - Circulatory collapse [Fatal]
  - Hepatic function abnormal [Unknown]
  - Jaundice [Unknown]
